FAERS Safety Report 23957689 (Version 1)
Quarter: 2024Q2

REPORT INFORMATION
  Report Type: Spontaneous
  Country: US (occurrence: US)
  Receive Date: 20240610
  Receipt Date: 20240610
  Transmission Date: 20240716
  Serious: Yes (Death, Hospitalization, Other)
  Sender: FDA-Public Use
  Company Number: US-AMGEN-USASP2024106732

PATIENT
  Sex: Male

DRUGS (1)
  1. INFLIXIMAB [Suspect]
     Active Substance: INFLIXIMAB
     Indication: Colitis
     Dosage: UNK
     Route: 065

REACTIONS (5)
  - Left ventricular dilatation [Fatal]
  - Postsplenectomy syndrome [Fatal]
  - Pulmonary oedema [Fatal]
  - Pneumococcal sepsis [Unknown]
  - Therapy partial responder [Unknown]
